FAERS Safety Report 6599124-2 (Version None)
Quarter: 2010Q1

REPORT INFORMATION
  Report Type: 
  Country: None (occurrence: None)
  Receive Date: 20100224
  Receipt Date: 20091110
  Transmission Date: 20100710
  Serious: No
  Sender: FDA-Public Use
  Company Number: US-BRISTOL-MYERS SQUIBB COMPANY-14849921

PATIENT
  Age: 55 Year
  Sex: Female
  Weight: 94 kg

DRUGS (9)
  1. GLUCOPHAGE [Suspect]
     Indication: DIABETES MELLITUS
     Dosage: 1 DF=5/500 MG
  2. LISINOPRIL [Concomitant]
  3. SIMVASTATIN [Concomitant]
  4. BUSPAR [Concomitant]
  5. NEXIUM [Concomitant]
  6. ZOLOFT [Concomitant]
  7. LANTUS [Concomitant]
  8. ABILIFY [Concomitant]
  9. HUMALOG [Concomitant]
     Dosage: HUMALOG PEN

REACTIONS (1)
  - BLOOD GLUCOSE INCREASED [None]
